FAERS Safety Report 9181593 (Version 1)
Quarter: 2013Q1

REPORT INFORMATION
  Report Type: Spontaneous
  Country: US (occurrence: None)
  Receive Date: 20120621
  Receipt Date: 20120621
  Transmission Date: 20140127
  Serious: Yes (Hospitalization)
  Sender: FDA-Public Use
  Company Number: 036494

PATIENT
  Sex: Female

DRUGS (3)
  1. CIMZIA [Suspect]
     Indication: CROHN^S DISEASE
     Route: 058
     Dates: start: 20101213
  2. MERACAPTOPURINE [Concomitant]
  3. MESALIME [Concomitant]

REACTIONS (2)
  - Crohn^s disease [None]
  - Gastrointestinal inflammation [None]
